FAERS Safety Report 4494385-8 (Version None)
Quarter: 2004Q4

REPORT INFORMATION
  Report Type: 
  Country: None (occurrence: None)
  Receive Date: 20041102
  Receipt Date: 20041019
  Transmission Date: 20050328
  Serious: Yes (Other)
  Sender: FDA-Public Use
  Company Number: GBS041015779

PATIENT
  Age: 37 Year
  Sex: Female
  Weight: 68 kg

DRUGS (1)
  1. YENTREVE (DULOXETINE HYDROCHLORIDE) [Suspect]
     Indication: STRESS INCONTINENCE
     Dosage: 40 MG/2 DAY
     Dates: start: 20041005, end: 20041006

REACTIONS (6)
  - AGITATION [None]
  - DIZZINESS [None]
  - DYSARTHRIA [None]
  - FACIAL PARESIS [None]
  - INSOMNIA [None]
  - TREMOR [None]
